FAERS Safety Report 6068415-6 (Version None)
Quarter: 2009Q1

REPORT INFORMATION
  Report Type: 
  Country: None (occurrence: None)
  Receive Date: 20090203
  Receipt Date: 20090120
  Transmission Date: 20090719
  Serious: Yes (Death)
  Sender: FDA-Public Use
  Company Number: 2008S1000575

PATIENT
  Age: 64 Year
  Sex: Male

DRUGS (5)
  1. ACITRETIN [Suspect]
     Indication: DRUG USE FOR UNKNOWN INDICATION
     Dosage: 25 MG;QD;P;O;
     Route: 048
     Dates: start: 20080129, end: 20080220
  2. VENLAFAXINE HCL [Concomitant]
  3. SIMVASTATIN [Concomitant]
  4. CARVEDILOL [Concomitant]
  5. CEFTRIAXONE [Concomitant]

REACTIONS (4)
  - DEPRESSED LEVEL OF CONSCIOUSNESS [None]
  - HEPATIC FUNCTION ABNORMAL [None]
  - INTERNATIONAL NORMALISED RATIO INCREASED [None]
  - LEUKOPENIA [None]
